FAERS Safety Report 7351926-0 (Version None)
Quarter: 2011Q1

REPORT INFORMATION
  Report Type: 
  Country: None (occurrence: None)
  Receive Date: 20110310
  Receipt Date: 20110310
  Transmission Date: 20110831
  Serious: Yes (Other)
  Sender: FDA-Public Use
  Company Number: None

PATIENT
  Sex: Male
  Weight: 90.7194 kg

DRUGS (1)
  1. LOVAZA [Suspect]
     Indication: BLOOD CHOLESTEROL INCREASED
     Dosage: 1 CAPSULE DAILY ORAL
     Route: 048
     Dates: start: 20101026, end: 20110214

REACTIONS (2)
  - ANORECTAL DISCOMFORT [None]
  - ANAL PRURITUS [None]
